FAERS Safety Report 5341335-8 (Version None)
Quarter: 2007Q2

REPORT INFORMATION
  Report Type: 
  Country: None (occurrence: None)
  Receive Date: 20070530
  Receipt Date: 20070518
  Transmission Date: 20071010
  Serious: Yes (Death)
  Sender: FDA-Public Use
  Company Number: 2006SP004167

PATIENT
  Age: 45 Year
  Sex: Male
  Weight: 92.5338 kg

DRUGS (2)
  1. LUNESTA [Suspect]
     Indication: INSOMNIA
     Dosage: ORAL
     Route: 048
     Dates: start: 20061106, end: 20061116
  2. NEURONTIN [Suspect]

REACTIONS (10)
  - ACUTE MYOCARDIAL INFARCTION [None]
  - ARTERIOSCLEROSIS [None]
  - AUTOIMMUNE THYROIDITIS [None]
  - COMPLETED SUICIDE [None]
  - EMPHYSEMA [None]
  - HEPATIC STEATOSIS [None]
  - INTENTIONAL SELF-INJURY [None]
  - LACERATION [None]
  - OVERDOSE [None]
  - SPLEEN CONGESTION [None]
